FAERS Safety Report 13922097 (Version 1)
Quarter: 2017Q3

REPORT INFORMATION
  Report Type: Spontaneous
  Country: US (occurrence: US)
  Receive Date: 20170830
  Receipt Date: 20170830
  Transmission Date: 20171127
  Serious: No
  Sender: FDA-Public Use
  Company Number: US-TARO-2017TAR00226

PATIENT
  Age: 89 Year
  Sex: Female

DRUGS (3)
  1. WARFARIN [Suspect]
     Active Substance: WARFARIN
     Indication: HEART RATE IRREGULAR
  2. WARFARIN SODIUM TABLETS USP 4MG [Suspect]
     Active Substance: WARFARIN SODIUM
     Indication: HEART RATE IRREGULAR
     Dosage: 4X/WEEK AS DIRECTED
  3. JANTOVEN [Suspect]
     Active Substance: WARFARIN SODIUM

REACTIONS (3)
  - Neuropathy peripheral [Unknown]
  - Heart rate irregular [Unknown]
  - Joint swelling [Unknown]
